FAERS Safety Report 16802686 (Version 2)
Quarter: 2019Q3

REPORT INFORMATION
  Report Type: Spontaneous
  Country: CN (occurrence: CN)
  Receive Date: 20190912
  Receipt Date: 20190918
  Transmission Date: 20191005
  Serious: Yes (Hospitalization, Other)
  Sender: FDA-Public Use
  Company Number: CN-ELI_LILLY_AND_COMPANY-CN201909005518

PATIENT
  Age: 81 Year
  Sex: Female
  Weight: 60 kg

DRUGS (3)
  1. HUMALOG MIX50/50 [Suspect]
     Active Substance: INSULIN LISPRO
     Dosage: 15 OR 16 OR 17 INTERNATIONAL UNIT, BID
     Route: 058
  2. HUMALOG MIX50/50 [Suspect]
     Active Substance: INSULIN LISPRO
     Dosage: 21 OR 22 OR 23 INTERNATIONAL UNIT, BID
     Route: 058
  3. HUMALOG MIX50/50 [Suspect]
     Active Substance: INSULIN LISPRO
     Indication: DIABETES MELLITUS
     Dosage: UNK, BID
     Route: 058

REACTIONS (10)
  - Blood glucose abnormal [Unknown]
  - Product dose omission [Unknown]
  - Neuropathy peripheral [Unknown]
  - Incorrect dose administered [Unknown]
  - Retinal haemorrhage [Unknown]
  - Injection site haemorrhage [Unknown]
  - Weight increased [Unknown]
  - Blindness [Unknown]
  - Memory impairment [Unknown]
  - Injection site pain [Unknown]
